FAERS Safety Report 9261822 (Version 1)
Quarter: 2013Q2

REPORT INFORMATION
  Report Type: Spontaneous
  Country: FR (occurrence: FR)
  Receive Date: 20130429
  Receipt Date: 20130429
  Transmission Date: 20140414
  Serious: Yes (Death, Congenital Anomaly)
  Sender: FDA-Public Use
  Company Number: FR-ASTRAZENECA-2013SE28724

PATIENT
  Age: 0 Day
  Sex: Male
  Weight: 2.1 kg

DRUGS (1)
  1. HYTACAND [Suspect]
     Indication: ESSENTIAL HYPERTENSION
     Dosage: 8 MG + 12.5 MG PER DOSE ONCE DAILY
     Route: 015
     Dates: end: 20130319

REACTIONS (2)
  - Foetal death [Fatal]
  - Foetal malformation [Fatal]
